FAERS Safety Report 4906127-X (Version None)
Quarter: 2006Q1

REPORT INFORMATION
  Report Type: 
  Country: None (occurrence: None)
  Receive Date: 20060207
  Receipt Date: 20060207
  Transmission Date: 20060701
  Serious: Yes (Death, Hospitalization)
  Sender: FDA-Public Use
  Company Number: None

PATIENT
  Sex: Male
  Weight: 80 kg

DRUGS (9)
  1. CISPLATIN [Suspect]
     Indication: NON-SMALL CELL LUNG CANCER
     Dosage: 140 MG
     Route: 042
     Dates: start: 20060126, end: 20060126
  2. TAXOTERE [Suspect]
     Dosage: 140 MG
     Route: 042
     Dates: start: 20060126, end: 20060126
  3. REGLAN AC AND HS [Concomitant]
  4. ALTACE [Concomitant]
  5. CARDURA [Concomitant]
  6. LESCOL [Concomitant]
  7. NORVASC [Concomitant]
  8. PLETAL [Concomitant]
  9. TOPROL-XL [Concomitant]

REACTIONS (11)
  - BLOOD PRESSURE DECREASED [None]
  - BLOOD PRESSURE SYSTOLIC INCREASED [None]
  - DIARRHOEA [None]
  - DYSPEPSIA [None]
  - FAECAL VOLUME INCREASED [None]
  - HEART RATE INCREASED [None]
  - LETHARGY [None]
  - LOSS OF CONSCIOUSNESS [None]
  - OXYGEN SATURATION DECREASED [None]
  - RESPIRATORY DISTRESS [None]
  - RESPIRATORY RATE INCREASED [None]
